FAERS Safety Report 25928652 (Version 1)
Quarter: 2025Q4

REPORT INFORMATION
  Report Type: Spontaneous
  Country: EU (occurrence: EU)
  Receive Date: 20251016
  Receipt Date: 20251016
  Transmission Date: 20260118
  Serious: Yes (Other)
  Sender: AUROBINDO
  Company Number: EU-AFSSAPS-ST2025001115

PATIENT
  Age: 95 Year
  Sex: Male

DRUGS (3)
  1. MIRTAZAPINE [Suspect]
     Active Substance: MIRTAZAPINE
     Indication: Product used for unknown indication
     Dosage: 30 MILLIGRAM, TOTAL
     Route: 048
     Dates: start: 20250808, end: 20250808
  2. QUETIAPINE [Suspect]
     Active Substance: QUETIAPINE
     Indication: Product used for unknown indication
     Dosage: 200 MILLIGRAM, TOTAL
     Route: 048
     Dates: start: 20250808, end: 20250808
  3. VALPROATE SODIUM [Suspect]
     Active Substance: VALPROATE SODIUM
     Indication: Product used for unknown indication
     Dosage: 250 MILLIGRAM, TOTAL
     Route: 048
     Dates: start: 20250808, end: 20250808

REACTIONS (3)
  - Fall [Recovered/Resolved]
  - Confusional state [Recovered/Resolved]
  - Wrong product administered [Recovered/Resolved]

NARRATIVE: CASE EVENT DATE: 20250808
